FAERS Safety Report 24202983 (Version 3)
Quarter: 2024Q3

REPORT INFORMATION
  Report Type: Spontaneous
  Country: CA (occurrence: CA)
  Receive Date: 20240813
  Receipt Date: 20240924
  Transmission Date: 20241016
  Serious: Yes (Other)
  Sender: INTERCEPT PHARMACEUTICALS
  Company Number: CA-ADVANZ PHARMA-202407006504

PATIENT
  Sex: Female

DRUGS (3)
  1. OCALIVA [Suspect]
     Active Substance: OBETICHOLIC ACID
     Indication: Primary biliary cholangitis
     Dosage: 5 MG, QD (OCALIVA)
     Route: 048
     Dates: start: 20230318
  2. OCALIVA [Suspect]
     Active Substance: OBETICHOLIC ACID
     Dosage: 10 MG, QD (OCALIVA)
     Route: 048
  3. URSODIOL [Concomitant]
     Active Substance: URSODIOL
     Dosage: 500 MG, BID

REACTIONS (10)
  - Nephrolithiasis [Not Recovered/Not Resolved]
  - Bladder disorder [Unknown]
  - Bladder discomfort [Unknown]
  - Joint swelling [Unknown]
  - Hip arthroplasty [Unknown]
  - Bladder operation [Unknown]
  - Procedural pain [Unknown]
  - Pruritus [Recovered/Resolved]
  - Peripheral swelling [Recovered/Resolved]
  - Arthralgia [Not Recovered/Not Resolved]

NARRATIVE: CASE EVENT DATE: 20230101
